FAERS Safety Report 8961014 (Version 1)
Quarter: 2012Q4

REPORT INFORMATION
  Report Type: 
  Country: PL (occurrence: PL)
  Receive Date: 20121213
  Receipt Date: 20121213
  Transmission Date: 20130627
  Serious: Yes (Other)
  Sender: FDA-Public Use
  Company Number: PHHY2012PL113028

PATIENT
  Age: 42 Year
  Sex: Female

DRUGS (2)
  1. CERTICAN [Suspect]
     Dosage: 1.5 mg, BID
  2. MYCOPHENOLATE MOFETIL [Concomitant]
     Dosage: 500 mg, BID

REACTIONS (2)
  - Kidney fibrosis [Unknown]
  - Renal tubular atrophy [Unknown]
